FAERS Safety Report 7672112-0 (Version None)
Quarter: 2011Q3

REPORT INFORMATION
  Report Type: 
  Country: None (occurrence: None)
  Receive Date: 20110809
  Receipt Date: 20110802
  Transmission Date: 20111222
  Serious: Yes (Other)
  Sender: FDA-Public Use
  Company Number: PHHY2011HR70260

PATIENT
  Sex: Female

DRUGS (10)
  1. TRAMADOL HCL [Concomitant]
     Dosage: UNK UKN, UNK
  2. IRUMED [Concomitant]
     Dosage: UNK UKN, UNK
  3. LACIPIL [Concomitant]
     Dosage: UNK UKN, UNK
  4. CELLCEPT [Concomitant]
     Dosage: UNK UKN, UNK
  5. NEORAL [Suspect]
     Dosage: UNK UKN, UNK
  6. CRESTOR [Interacting]
     Dosage: UNK UKN, UNK
     Dates: start: 20101001
  7. DIOVAN HCT [Concomitant]
     Dosage: UNK UKN, UNK
  8. OLICARD [Concomitant]
     Dosage: UNK UKN, UNK
  9. DIAZEPAM [Concomitant]
     Dosage: UNK UKN, UNK
  10. DURAGESIC-100 [Concomitant]
     Dosage: UNK UKN, UNK

REACTIONS (2)
  - DRUG INTERACTION [None]
  - COMPLICATIONS OF TRANSPLANTED KIDNEY [None]
